FAERS Safety Report 20264613 (Version 1)
Quarter: 2021Q4

REPORT INFORMATION
  Report Type: Spontaneous
  Country: FR (occurrence: FR)
  Receive Date: 20211231
  Receipt Date: 20211231
  Transmission Date: 20220303
  Serious: Yes (Life-Threatening)
  Sender: FDA-Public Use
  Company Number: None

PATIENT
  Age: 53 Year
  Sex: Male

DRUGS (5)
  1. PRAVASTATIN [Suspect]
     Active Substance: PRAVASTATIN
     Indication: Dyslipidaemia
     Dosage: 20 MG; THERAPY START DATE: ASKU; PRAVASTATIN SODIUM
     Route: 048
  2. AMISULPRIDE [Suspect]
     Active Substance: AMISULPRIDE
     Indication: Schizophrenia
     Dosage: 250 MG;THERAPY START DATE: ASKU
     Route: 048
  3. PALIPERIDONE PALMITATE [Suspect]
     Active Substance: PALIPERIDONE PALMITATE
     Indication: Schizophrenia
     Dosage: 100 MG; PROLONGED-RELEASE SUSPENSION FOR INJECTION; THERAPY START DATE: ASKU; XEPLION 100 MG PROLONG
     Route: 030
     Dates: end: 20211028
  4. LOPRAZOLAM [Concomitant]
     Active Substance: LOPRAZOLAM
     Dosage: 1 MG; THERAPY START DATE: ASKU
     Route: 048
  5. OXAZEPAM [Concomitant]
     Active Substance: OXAZEPAM
     Dosage: 125 MG; THERAPY START DATE: ASKU
     Route: 048

REACTIONS (1)
  - Status epilepticus [Recovered/Resolved]

NARRATIVE: CASE EVENT DATE: 20211123
